FAERS Safety Report 4688697-2 (Version None)
Quarter: 2005Q2

REPORT INFORMATION
  Report Type: 
  Country: None (occurrence: None)
  Receive Date: 20050608
  Receipt Date: 20050209
  Transmission Date: 20051028
  Serious: No
  Sender: FDA-Public Use
  Company Number: 2004-BP-10271BP

PATIENT
  Age: 81 Year
  Sex: Female

DRUGS (6)
  1. SPIRIVA [Suspect]
     Indication: CHRONIC OBSTRUCTIVE PULMONARY DISEASE
     Dosage: 18 MCG (18 MCG), IH
     Route: 055
     Dates: start: 20040901
  2. ALBUTEROL [Concomitant]
  3. BENICAR [Concomitant]
  4. CLONIDINE [Concomitant]
  5. NORVASC [Concomitant]
  6. MEVACOR [Concomitant]

REACTIONS (2)
  - DRUG INEFFECTIVE [None]
  - DRY MOUTH [None]
